FAERS Safety Report 11117473 (Version 3)
Quarter: 2016Q2

REPORT INFORMATION
  Report Type: Spontaneous
  Country: US (occurrence: US)
  Receive Date: 20150516
  Receipt Date: 20160628
  Transmission Date: 20160815
  Serious: Yes (Hospitalization)
  Sender: FDA-Public Use
  Company Number: US-AUROBINDO-AUR-APL-2015-04283

PATIENT
  Age: 16 Year
  Sex: Female
  Weight: 59 kg

DRUGS (3)
  1. CYCLOBENZAPRINE [Suspect]
     Active Substance: CYCLOBENZAPRINE
     Indication: PRODUCT USED FOR UNKNOWN INDICATION
     Dosage: 120 MG(2 MG/KG)
     Route: 048
  2. LEVETIRACETAM. [Interacting]
     Active Substance: LEVETIRACETAM
     Indication: PRODUCT USED FOR UNKNOWN INDICATION
     Dosage: UNK
     Route: 048
  3. LACOSAMIDE. [Interacting]
     Active Substance: LACOSAMIDE
     Indication: PRODUCT USED FOR UNKNOWN INDICATION
     Dosage: 4.5 G, (76 MG/KG)
     Route: 048

REACTIONS (17)
  - Metabolic acidosis [Recovered/Resolved]
  - Cardiac arrest [Recovered/Resolved]
  - Bradycardia [Recovered/Resolved]
  - Drug interaction [Recovered/Resolved]
  - Respiratory acidosis [Recovered/Resolved]
  - Generalised tonic-clonic seizure [Recovered/Resolved]
  - Electrocardiogram abnormal [Recovered/Resolved]
  - Unresponsive to stimuli [Recovered/Resolved]
  - Heart rate abnormal [Recovered/Resolved]
  - Electrocardiogram QRS complex prolonged [Recovered/Resolved]
  - Seizure [Recovered/Resolved]
  - Blood pressure abnormal [Recovered/Resolved]
  - Circulatory collapse [Recovered/Resolved]
  - Ventricular fibrillation [Recovered/Resolved]
  - Respiratory depression [Recovered/Resolved]
  - Sinus tachycardia [Recovered/Resolved]
  - Intentional overdose [Recovered/Resolved]
